FAERS Safety Report 16445571 (Version 3)
Quarter: 2019Q3

REPORT INFORMATION
  Report Type: Spontaneous
  Country: US (occurrence: US)
  Receive Date: 20190618
  Receipt Date: 20190823
  Transmission Date: 20191004
  Serious: No
  Sender: FDA-Public Use
  Company Number: US-PFIZER INC-2019257722

PATIENT
  Age: 79 Year
  Sex: Female
  Weight: 34.2 kg

DRUGS (4)
  1. LYRICA [Suspect]
     Active Substance: PREGABALIN
     Indication: NEUROPATHY PERIPHERAL
  2. TRAMADOL. [Concomitant]
     Active Substance: TRAMADOL
     Indication: PAIN
     Dosage: UNK
  3. LYRICA [Suspect]
     Active Substance: PREGABALIN
     Indication: PAIN
     Dosage: 50 MG, 2X/DAY
     Route: 048
     Dates: start: 2018
  4. LYRICA [Suspect]
     Active Substance: PREGABALIN
     Indication: GANGRENE

REACTIONS (5)
  - Pain in extremity [Recovering/Resolving]
  - Drug ineffective [Recovered/Resolved]
  - Dizziness [Unknown]
  - Phantom limb syndrome [Recovering/Resolving]
  - Asthenia [Recovering/Resolving]

NARRATIVE: CASE EVENT DATE: 2018
